FAERS Safety Report 10430714 (Version 5)
Quarter: 2015Q1

REPORT INFORMATION
  Report Type: Spontaneous
  Country: US (occurrence: US)
  Receive Date: 20140904
  Receipt Date: 20150323
  Transmission Date: 20150720
  Serious: Yes (Hospitalization, Disabling, Other)
  Sender: FDA-Public Use
  Company Number: US-009507513-1408USA015028

PATIENT
  Sex: Female

DRUGS (2)
  1. ALENDRONATE SODIUM. [Suspect]
     Active Substance: ALENDRONATE SODIUM
     Dosage: 70 MG, UNK
  2. FOSAMAX [Suspect]
     Active Substance: ALENDRONATE SODIUM
     Indication: OSTEOPOROSIS
     Dosage: 70 MG, UNK
     Route: 048
     Dates: start: 20051025, end: 20080119

REACTIONS (47)
  - Hypokalaemia [Unknown]
  - Low turnover osteopathy [Not Recovered/Not Resolved]
  - Acute kidney injury [Unknown]
  - Back pain [Not Recovered/Not Resolved]
  - Aortic bruit [Not Recovered/Not Resolved]
  - Cardiac murmur [Not Recovered/Not Resolved]
  - Thrombocytopenia [Unknown]
  - Open reduction of fracture [Unknown]
  - Major depression [Unknown]
  - Cataract operation [Unknown]
  - Hypomagnesaemia [Unknown]
  - Femur fracture [Unknown]
  - Breast cancer female [Unknown]
  - Urinary tract infection [Unknown]
  - Surgery [Unknown]
  - Intramedullary rod insertion [Unknown]
  - Removal of internal fixation [Unknown]
  - Renal surgery [Unknown]
  - Mood swings [Not Recovered/Not Resolved]
  - Memory impairment [Not Recovered/Not Resolved]
  - Hypothyroidism [Unknown]
  - Appendicectomy [Unknown]
  - Femur fracture [Unknown]
  - Neurological decompensation [Unknown]
  - Femur fracture [Unknown]
  - Osteopenia [Unknown]
  - Urinary incontinence [Unknown]
  - Constipation [Unknown]
  - Surgery [Unknown]
  - Cholecystectomy [Unknown]
  - Anxiety [Not Recovered/Not Resolved]
  - Hypovolaemia [Unknown]
  - Haemorrhagic anaemia [Unknown]
  - Hyponatraemia [Unknown]
  - Malnutrition [Unknown]
  - Femur fracture [Not Recovered/Not Resolved]
  - Knee arthroplasty [Unknown]
  - Depression [Not Recovered/Not Resolved]
  - Hyperlipidaemia [Unknown]
  - Lymphoedema [Unknown]
  - Hypertension [Unknown]
  - Pain in extremity [Unknown]
  - Intramedullary rod insertion [Unknown]
  - Mastectomy [Unknown]
  - Fall [Unknown]
  - Carpal tunnel syndrome [Unknown]
  - Bladder operation [Unknown]

NARRATIVE: CASE EVENT DATE: 20080425
